FAERS Safety Report 19180418 (Version 1)
Quarter: 2021Q2

REPORT INFORMATION
  Report Type: Spontaneous
  Country: US (occurrence: US)
  Receive Date: 20210426
  Receipt Date: 20210426
  Transmission Date: 20210717
  Serious: Yes (Other)
  Sender: FDA-Public Use
  Company Number: US-GW PHARMA-202104USGW02012

PATIENT

DRUGS (1)
  1. EPIDIOLEX [Suspect]
     Active Substance: CANNABIDIOL
     Indication: EPILEPSY
     Dosage: 280 MILLIGRAM, BID
     Route: 048
     Dates: start: 201906

REACTIONS (1)
  - Muscle disorder [Unknown]

NARRATIVE: CASE EVENT DATE: 2021
